FAERS Safety Report 13729048 (Version 1)
Quarter: 2017Q3

REPORT INFORMATION
  Report Type: Spontaneous
  Country: US (occurrence: US)
  Receive Date: 20170707
  Receipt Date: 20170707
  Transmission Date: 20171127
  Serious: No
  Sender: FDA-Public Use
  Company Number: US-ELI_LILLY_AND_COMPANY-US201706009890

PATIENT
  Age: 73 Year
  Sex: Female

DRUGS (17)
  1. IRON [Concomitant]
     Active Substance: IRON
  2. RESTASIS [Concomitant]
     Active Substance: CYCLOSPORINE
  3. MELATONIN [Concomitant]
     Active Substance: MELATONIN
  4. VOLTAREN [Concomitant]
     Active Substance: DICLOFENAC SODIUM
  5. VITAMIN D                          /00107901/ [Concomitant]
     Active Substance: ERGOCALCIFEROL
  6. NYSTATIN. [Concomitant]
     Active Substance: NYSTATIN
  7. CLARITIN [Concomitant]
     Active Substance: LORATADINE
  8. DILTIAZEM CD [Concomitant]
     Active Substance: DILTIAZEM
  9. CALCIUM [Concomitant]
     Active Substance: CALCIUM
  10. PRAVASTATIN SODIUM. [Concomitant]
     Active Substance: PRAVASTATIN SODIUM
  11. PROVENTIL HFA                      /00139501/ [Concomitant]
  12. ADCIRCA [Suspect]
     Active Substance: TADALAFIL
     Indication: PULMONARY HYPERTENSION
     Dosage: UNK, UNKNOWN
     Route: 065
  13. OMEPRAZOLE. [Concomitant]
     Active Substance: OMEPRAZOLE
  14. AMBRISENTAN [Suspect]
     Active Substance: AMBRISENTAN
     Indication: PULMONARY HYPERTENSION
     Dosage: 5 MG, DAILY
     Route: 048
     Dates: start: 20160219
  15. NASONEX [Concomitant]
     Active Substance: MOMETASONE FUROATE
  16. OMEGA-3                            /01866101/ [Concomitant]
     Active Substance: OMEGA-3 FATTY ACIDS
  17. ASPIRIN 81 [Concomitant]
     Active Substance: ASPIRIN

REACTIONS (3)
  - Rhinorrhoea [Recovering/Resolving]
  - Oropharyngeal pain [Recovering/Resolving]
  - Nasal congestion [Recovering/Resolving]

NARRATIVE: CASE EVENT DATE: 20170607
